FAERS Safety Report 13413158 (Version 4)
Quarter: 2024Q1

REPORT INFORMATION
  Report Type: Spontaneous
  Country: US (occurrence: US)
  Receive Date: 20170406
  Receipt Date: 20240226
  Transmission Date: 20240409
  Serious: No
  Sender: FDA-Public Use
  Company Number: US-JNJFOC-20170311492

PATIENT
  Age: 9 Year
  Sex: Male

DRUGS (11)
  1. RISPERDAL [Suspect]
     Active Substance: RISPERIDONE
     Indication: Intellectual disability
     Route: 048
     Dates: start: 20031013, end: 20050228
  2. RISPERDAL [Suspect]
     Active Substance: RISPERIDONE
     Indication: Tuberous sclerosis complex
     Dosage: UNSPECIFIED DOSE AND 0.5 MG
     Route: 048
     Dates: start: 20040103, end: 20061121
  3. RISPERDAL [Suspect]
     Active Substance: RISPERIDONE
     Indication: Behaviour disorder
     Dosage: VARYING DOSES INCLUDING UNSPECIFIED DOSE AND 0.5 MG AT DIFFERENT FREQUENCIES
     Route: 048
     Dates: start: 20080108, end: 20110829
  4. RISPERDAL [Suspect]
     Active Substance: RISPERIDONE
     Route: 048
     Dates: end: 20140420
  5. RISPERDAL [Suspect]
     Active Substance: RISPERIDONE
     Indication: Intellectual disability
     Route: 048
     Dates: start: 20031013, end: 20031209
  6. RISPERDAL [Suspect]
     Active Substance: RISPERIDONE
     Indication: Tuberous sclerosis complex
  7. RISPERDAL [Suspect]
     Active Substance: RISPERIDONE
     Indication: Intellectual disability
     Route: 048
     Dates: start: 20031013, end: 20050228
  8. RISPERDAL [Suspect]
     Active Substance: RISPERIDONE
     Indication: Tuberous sclerosis complex
     Route: 048
     Dates: start: 20080108
  9. RISPERDAL [Suspect]
     Active Substance: RISPERIDONE
     Route: 048
     Dates: start: 20081003
  10. RISPERIDONE [Suspect]
     Active Substance: RISPERIDONE
     Indication: Intellectual disability
     Route: 048
     Dates: start: 20120328, end: 20140420
  11. RISPERIDONE [Suspect]
     Active Substance: RISPERIDONE
     Indication: Tuberous sclerosis complex

REACTIONS (5)
  - Gynaecomastia [Unknown]
  - Emotional distress [Unknown]
  - Off label use [Unknown]
  - Product use in unapproved indication [Unknown]
  - Off label use [Unknown]

NARRATIVE: CASE EVENT DATE: 20031013
